FAERS Safety Report 12870276 (Version 1)
Quarter: 2016Q4

REPORT INFORMATION
  Report Type: Spontaneous
  Country: US (occurrence: US)
  Receive Date: 20161021
  Receipt Date: 20161021
  Transmission Date: 20170207
  Serious: No
  Sender: FDA-Public Use
  Company Number: US-GLAXOSMITHKLINE-US2016149870

PATIENT
  Age: 61 Year
  Sex: Female

DRUGS (2)
  1. ALLI [Suspect]
     Active Substance: ORLISTAT
     Indication: DIABETES MELLITUS MANAGEMENT
     Dosage: 1 DF, UNK
  2. ALLI [Suspect]
     Active Substance: ORLISTAT
     Dosage: UNK
     Dates: start: 20160930

REACTIONS (5)
  - Blood glucose increased [Unknown]
  - Gastric disorder [Unknown]
  - Circumstance or information capable of leading to medication error [Recovered/Resolved]
  - Intentional product use issue [Unknown]
  - Therapeutic response unexpected [Unknown]
